FAERS Safety Report 7983130 (Version 4)
Quarter: 2012Q4

REPORT INFORMATION
  Report Type: 
  Country: US (occurrence: US)
  Receive Date: 20110609
  Receipt Date: 20121031
  Transmission Date: 20130627
  Serious: Yes (Hospitalization, Other)
  Sender: FDA-Public Use
  Company Number: US-US-EMD SERONO, INC.-7062961

PATIENT
  Sex: Male

DRUGS (1)
  1. REBIF [Suspect]
     Indication: PRODUCT USED FOR UNKNOWN INDICATION
     Route: 058
     Dates: start: 20090424

REACTIONS (5)
  - Pancreatitis [Unknown]
  - Diabetes mellitus [Recovered/Resolved]
  - Blood triglycerides increased [Recovered/Resolved]
  - Musculoskeletal chest pain [Unknown]
  - Vision blurred [Unknown]
